FAERS Safety Report 5318594-0 (Version None)
Quarter: 2007Q1

REPORT INFORMATION
  Report Type: 
  Country: None (occurrence: None)
  Receive Date: 20070130
  Receipt Date: 20061016
  Transmission Date: 20070707
  Serious: No
  Sender: FDA-Public Use
  Company Number: 200618776US

PATIENT
  Sex: Female

DRUGS (1)
  1. KETEK [Suspect]
     Dosage: PO
     Route: 048
     Dates: start: 20061013

REACTIONS (3)
  - DRY MOUTH [None]
  - DYSGEUSIA [None]
  - POLLAKIURIA [None]
